FAERS Safety Report 24610611 (Version 3)
Quarter: 2024Q4

REPORT INFORMATION
  Report Type: Spontaneous
  Country: US (occurrence: US)
  Receive Date: 20241112
  Receipt Date: 20241206
  Transmission Date: 20250115
  Serious: Yes (Other)
  Sender: MALLINCKRODT
  Company Number: US-MALLINCKRODT-MNK202406396

PATIENT
  Age: 57 Year
  Sex: Female
  Weight: 131 kg

DRUGS (6)
  1. CORTICOTROPIN [Suspect]
     Active Substance: CORTICOTROPIN
     Indication: Rheumatoid arthritis
     Route: 058
     Dates: start: 202404
  2. CORTICOTROPIN [Suspect]
     Active Substance: CORTICOTROPIN
     Indication: Rheumatoid arthritis
  3. INFLUENZA VIRUS VACCINE [Suspect]
     Active Substance: INFLUENZA VIRUS VACCINE
     Indication: Influenza immunisation
     Dosage: UNK
  4. COVID-19 VACCINE NOS [Suspect]
     Active Substance: COVID-19 VACCINE
     Indication: COVID-19 immunisation
     Dosage: UNK
  5. OXYGEN [Suspect]
     Active Substance: OXYGEN
     Indication: Product used for unknown indication
     Dosage: UNKNOWN
  6. ABILIFY [Concomitant]
     Active Substance: ARIPIPRAZOLE
     Dosage: UNKNOWN

REACTIONS (9)
  - Dependence on oxygen therapy [Not Recovered/Not Resolved]
  - Pain in extremity [Unknown]
  - Blister [Unknown]
  - Tongue disorder [Not Recovered/Not Resolved]
  - Immune system disorder [Unknown]
  - Immunisation reaction [Unknown]
  - Infection [Unknown]
  - Hypersensitivity [Unknown]
  - Fatigue [Not Recovered/Not Resolved]

NARRATIVE: CASE EVENT DATE: 20240101
